FAERS Safety Report 10041925 (Version 2)
Quarter: 2014Q1

REPORT INFORMATION
  Report Type: Report from Study
  Country: FR (occurrence: FR)
  Receive Date: 20140327
  Receipt Date: 20140327
  Transmission Date: 20141002
  Serious: No
  Sender: FDA-Public Use
  Company Number: PHHY2013FR027708

PATIENT
  Age: 65 Year
  Sex: Female
  Weight: 146 kg

DRUGS (2)
  1. ACLASTA [Suspect]
     Indication: OSTEOPOROSIS
  2. CALCIDOSE [Concomitant]
     Dosage: UNK
     Dates: start: 2012

REACTIONS (1)
  - No adverse event [Unknown]
